FAERS Safety Report 4684298-0 (Version None)
Quarter: 2005Q2

REPORT INFORMATION
  Report Type: 
  Country: None (occurrence: None)
  Receive Date: 20050531
  Receipt Date: 20040831
  Transmission Date: 20051028
  Serious: Yes (Hospitalization, Other)
  Sender: FDA-Public Use
  Company Number: 200416587US

PATIENT
  Age: 51 Year
  Sex: Male
  Weight: 72.7 kg

DRUGS (5)
  1. LOVENOX [Suspect]
     Indication: PROPHYLAXIS
     Dosage: 70 MG BID INJ
     Dates: start: 20040814
  2. LOVENOX [Suspect]
     Indication: PULMONARY EMBOLISM
     Dosage: 70 MG BID INJ
     Dates: start: 20040814
  3. FLOMAX NOS [Concomitant]
  4. CIPROFLOXACIN HCL [Concomitant]
  5. WARFARIN SODIUM [Concomitant]

REACTIONS (1)
  - HAEMORRHAGE [None]
